FAERS Safety Report 8122130-3 (Version None)
Quarter: 2012Q1

REPORT INFORMATION
  Report Type: 
  Country: None (occurrence: None)
  Receive Date: 20120207
  Receipt Date: 20120207
  Transmission Date: 20120608
  Serious: Yes (Hospitalization)
  Sender: FDA-Public Use
  Company Number: None

PATIENT
  Age: 88 Year
  Sex: Female
  Weight: 57.1532 kg

DRUGS (10)
  1. LEVOTHYROXINE SODIUM [Concomitant]
  2. LATANOPROST [Concomitant]
  3. HUMALOG [Concomitant]
  4. PRADAXA [Suspect]
     Indication: CEREBROVASCULAR ACCIDENT
     Dates: start: 20110406, end: 20111210
  5. LANTUS [Concomitant]
  6. MULTI VITAMINS B COMPLEX D E [Concomitant]
  7. AMLODIPINE BESYLATE [Concomitant]
  8. BONIVA [Concomitant]
  9. TRAMADOL HCL [Concomitant]
  10. GABAPENTIN [Concomitant]

REACTIONS (6)
  - ABDOMINAL PAIN UPPER [None]
  - PAIN [None]
  - VOMITING [None]
  - ASTHENIA [None]
  - RENAL DISORDER [None]
  - HAEMORRHAGE [None]
